FAERS Safety Report 4919870-3 (Version None)
Quarter: 2006Q1

REPORT INFORMATION
  Report Type: 
  Country: None (occurrence: None)
  Receive Date: 20060221
  Receipt Date: 20060221
  Transmission Date: 20060701
  Serious: Yes (Hospitalization)
  Sender: FDA-Public Use
  Company Number: None

PATIENT
  Sex: Female
  Weight: 81.6 kg

DRUGS (5)
  1. CYCLOPHOSPHAMIDE [Suspect]
     Indication: BREAST CANCER
     Dosage: 500 MG
     Dates: start: 20051028, end: 20060207
  2. DOXORUBICIN HCL [Suspect]
     Dosage: 500 MG
     Dates: start: 20051028, end: 20060203
  3. G-CSF (FILGRASTIM, AMGEN) [Suspect]
     Dosage: 2.88 MG
     Dates: start: 20051029, end: 20060209
  4. BACTRIM DS [Suspect]
     Dosage: 3840 MG
     Dates: start: 20051031, end: 20060207
  5. DECADRON SRC [Concomitant]

REACTIONS (19)
  - ATELECTASIS [None]
  - BLOOD PHOSPHORUS DECREASED [None]
  - BODY TEMPERATURE INCREASED [None]
  - CHILLS [None]
  - CYSTITIS [None]
  - DIABETES MELLITUS [None]
  - DYSPNOEA [None]
  - HAEMATURIA [None]
  - HAEMOGLOBIN DECREASED [None]
  - HEART RATE INCREASED [None]
  - IMPAIRED HEALING [None]
  - LUNG INFILTRATION [None]
  - NAUSEA [None]
  - PNEUMONIA [None]
  - POLLAKIURIA [None]
  - PULMONARY OEDEMA [None]
  - PURULENT DISCHARGE [None]
  - STAPHYLOCOCCAL INFECTION [None]
  - VOMITING [None]
